FAERS Safety Report 5176991-0 (Version None)
Quarter: 2006Q4

REPORT INFORMATION
  Report Type: 
  Country: None (occurrence: None)
  Receive Date: 20061218
  Receipt Date: 20020724
  Transmission Date: 20070319
  Serious: Yes (Hospitalization)
  Sender: FDA-Public Use
  Company Number: DE-AVENTIS-200212449EU

PATIENT
  Sex: Female
  Weight: 104 kg

DRUGS (6)
  1. TAXOTERE [Suspect]
     Indication: BREAST CANCER
     Route: 042
     Dates: start: 20020610, end: 20020610
  2. PASPERTIN [Concomitant]
     Indication: VOMITING
     Route: 042
     Dates: start: 20020610, end: 20020610
  3. FORTECORTIN                        /00016001/ [Concomitant]
     Indication: PREMEDICATION
     Route: 048
     Dates: start: 20020609, end: 20020609
  4. FORTECORTIN                        /00016001/ [Concomitant]
     Route: 048
     Dates: start: 20020610, end: 20020610
  5. FORTECORTIN                        /00016001/ [Concomitant]
     Route: 048
     Dates: start: 20020611, end: 20020611
  6. VITAMIN B COMPLEX WITH C [Concomitant]
     Route: 042
     Dates: start: 20020610, end: 20020610

REACTIONS (4)
  - IMMUNOSUPPRESSION [None]
  - IMPAIRED HEALING [None]
  - INFLAMMATION [None]
  - MECHANICAL COMPLICATION OF IMPLANT [None]
